FAERS Safety Report 20702090 (Version 2)
Quarter: 2022Q2

REPORT INFORMATION
  Report Type: Spontaneous
  Country: US (occurrence: US)
  Receive Date: 20220412
  Receipt Date: 20220418
  Transmission Date: 20220721
  Serious: Yes (Life-Threatening, Hospitalization, Other)
  Sender: FDA-Public Use
  Company Number: US-MLMSERVICE-20220330-3467555-1

PATIENT
  Age: 54 Year
  Sex: Male

DRUGS (1)
  1. METOCLOPRAMIDE HYDROCHLORIDE [Suspect]
     Active Substance: METOCLOPRAMIDE HYDROCHLORIDE
     Indication: Nausea
     Dosage: UNK

REACTIONS (5)
  - Kounis syndrome [Recovering/Resolving]
  - Atrioventricular block complete [Recovering/Resolving]
  - Nodal rhythm [Recovering/Resolving]
  - Hypotension [Recovering/Resolving]
  - Drug hypersensitivity [Recovering/Resolving]
